FAERS Safety Report 5158084-1 (Version None)
Quarter: 2006Q4

REPORT INFORMATION
  Report Type: 
  Country: None (occurrence: None)
  Receive Date: 20061116
  Receipt Date: 20061107
  Transmission Date: 20070319
  Serious: Yes (Hospitalization)
  Sender: FDA-Public Use
  Company Number: 2006113251

PATIENT
  Age: 13 Year
  Sex: Female
  Weight: 58 kg

DRUGS (1)
  1. ZITHROMAX [Suspect]
     Indication: TONSILLITIS
     Dosage: 500 MG (250 MG, 2 IN 1 D), ORAL
     Route: 048
     Dates: start: 20060905, end: 20060908

REACTIONS (2)
  - ONYCHALGIA [None]
  - PARAESTHESIA [None]
